FAERS Safety Report 9667746 (Version 1)
Quarter: 2013Q4

REPORT INFORMATION
  Report Type: Other
  Country: US (occurrence: US)
  Receive Date: 20131104
  Receipt Date: 20131104
  Transmission Date: 20140711
  Serious: No
  Sender: FDA-Public Use
  Company Number: US-ENDO PHARMACEUTICALS INC.-PRED20110003

PATIENT
  Sex: Female

DRUGS (2)
  1. PREDNISONE [Suspect]
     Indication: MALAISE
     Dosage: UNKNOWN
     Route: 048
     Dates: start: 200910, end: 201008
  2. PREDNISONE [Suspect]
     Indication: ABDOMINAL DISCOMFORT

REACTIONS (1)
  - Osteopenia [Unknown]
